FAERS Safety Report 8141437-7 (Version None)
Quarter: 2012Q1

REPORT INFORMATION
  Report Type: 
  Country: None (occurrence: None)
  Receive Date: 20120216
  Receipt Date: 20120213
  Transmission Date: 20120608
  Serious: Yes (Death, Other)
  Sender: FDA-Public Use
  Company Number: PHHY2012AR012518

PATIENT
  Sex: Female

DRUGS (1)
  1. STALEVO 100 [Suspect]
     Indication: PARKINSON'S DISEASE
     Dates: start: 20120203

REACTIONS (4)
  - TACHYCARDIA [None]
  - EXOPHTHALMOS [None]
  - TREMOR [None]
  - MYOCARDIAL INFARCTION [None]
